FAERS Safety Report 9731561 (Version 1)
Quarter: 2013Q4

REPORT INFORMATION
  Report Type: Spontaneous
  Country: SK (occurrence: SK)
  Receive Date: 20131205
  Receipt Date: 20131205
  Transmission Date: 20140711
  Serious: Yes (Life-Threatening, Hospitalization)
  Sender: FDA-Public Use
  Company Number: SK-ROCHE-1314608

PATIENT
  Age: 68 Year
  Sex: Male
  Weight: 95 kg

DRUGS (6)
  1. XOLAIR [Suspect]
     Indication: ASTHMA
     Route: 058
     Dates: start: 20080813
  2. XOLAIR [Suspect]
     Route: 058
     Dates: start: 20131113, end: 20131113
  3. SERETIDE DISKUS [Concomitant]
     Dosage: 50/500MG
     Route: 065
  4. EUPHYLIN [Concomitant]
     Route: 065
  5. MONTELUKAST [Concomitant]
     Route: 065
  6. BERODUAL AEROSOL [Concomitant]
     Dosage: 20/50 MCG
     Route: 065

REACTIONS (1)
  - Subdural haematoma [Not Recovered/Not Resolved]
